FAERS Safety Report 8915968 (Version 3)
Quarter: 2013Q1

REPORT INFORMATION
  Report Type: Spontaneous
  Country: US (occurrence: US)
  Receive Date: 20121119
  Receipt Date: 20130325
  Transmission Date: 20140127
  Serious: Yes (Death)
  Sender: FDA-Public Use
  Company Number: US-GLAXOSMITHKLINE-A0990056A

PATIENT
  Age: 77 Year
  Sex: Female

DRUGS (1)
  1. FLOLAN [Suspect]
     Indication: PRODUCT USED FOR UNKNOWN INDICATION
     Dosage: 22NGKM CONTINUOUS
     Route: 042
     Dates: start: 20120814

REACTIONS (6)
  - Cardiogenic shock [Fatal]
  - Right ventricular failure [Fatal]
  - Pulmonary hypertension [Unknown]
  - Pain in jaw [Unknown]
  - Headache [Unknown]
  - Diarrhoea [Unknown]
